FAERS Safety Report 5693462-3 (Version None)
Quarter: 2008Q2

REPORT INFORMATION
  Report Type: 
  Country: None (occurrence: None)
  Receive Date: 20080402
  Receipt Date: 20080402
  Transmission Date: 20081010
  Serious: Yes (Other)
  Sender: FDA-Public Use
  Company Number: None

PATIENT
  Age: 2 Year
  Sex: Male
  Weight: 15.4223 kg

DRUGS (1)
  1. SINGULAIR [Suspect]
     Indication: ASTHMA
     Dosage: 4 MG EACH EVENING ORAL
     Route: 048
     Dates: start: 20070101, end: 20080328

REACTIONS (2)
  - NIGHTMARE [None]
  - SLEEP DISORDER [None]
